FAERS Safety Report 14364697 (Version 1)
Quarter: 2018Q1

REPORT INFORMATION
  Report Type: Spontaneous
  Country: US (occurrence: US)
  Receive Date: 20180107
  Receipt Date: 20180107
  Transmission Date: 20180509
  Serious: No
  Sender: FDA-Public Use
  Company Number: None

PATIENT
  Age: 8 Year
  Sex: Female
  Weight: 25.2 kg

DRUGS (1)
  1. AQUAPHOR HEALING [Suspect]
     Active Substance: PETROLATUM
     Indication: SKIN IRRITATION
     Dosage: ?          QUANTITY:1 OUNCE(S);?
     Route: 061
     Dates: start: 20180106

REACTIONS (3)
  - Skin irritation [None]
  - Swelling face [None]
  - Eye swelling [None]

NARRATIVE: CASE EVENT DATE: 20180107
